FAERS Safety Report 4853669-1 (Version None)
Quarter: 2005Q4

REPORT INFORMATION
  Report Type: 
  Country: None (occurrence: None)
  Receive Date: 20051212
  Receipt Date: 20051128
  Transmission Date: 20060501
  Serious: Yes (Hospitalization)
  Sender: FDA-Public Use
  Company Number: DEU-2005-0001799

PATIENT
  Age: 77 Year
  Sex: Female

DRUGS (5)
  1. PALLADONE [Suspect]
     Indication: CANCER PAIN
     Dosage: 4 MG, BID, ORAL
     Route: 048
  2. BISOPROLOL FUMARATE [Concomitant]
  3. MADOPAR (LEVODOPA, BENSERAZIDE HYDROCHLORIDE) [Concomitant]
  4. POTASSIUM CHLORIDE [Concomitant]
  5. LACTULOSE [Concomitant]

REACTIONS (5)
  - CONSTIPATION [None]
  - DRUG EFFECT DECREASED [None]
  - FAECALOMA [None]
  - ISCHAEMIC ULCER [None]
  - RECTAL ULCER [None]
